FAERS Safety Report 15790211 (Version 1)
Quarter: 2019Q1

REPORT INFORMATION
  Report Type: Spontaneous
  Country: CN (occurrence: CN)
  Receive Date: 20190104
  Receipt Date: 20190104
  Transmission Date: 20190417
  Serious: Yes (Hospitalization)
  Sender: FDA-Public Use
  Company Number: CN-PFIZER INC-2019001101

PATIENT
  Age: 71 Year
  Sex: Male
  Weight: 55 kg

DRUGS (3)
  1. DIFLUCAN [Suspect]
     Active Substance: FLUCONAZOLE
     Indication: LARYNGEAL CANCER
     Dosage: 0.2 G, 1X/DAY
     Route: 041
     Dates: start: 20181016
  2. SODIUM CHLORIDE. [Suspect]
     Active Substance: SODIUM CHLORIDE
     Indication: LARYNGEAL CANCER
     Dosage: 250 ML, 3X/DAY
     Route: 041
     Dates: start: 20181016, end: 20181024
  3. TIENAM [Suspect]
     Active Substance: CILASTATIN SODIUM\IMIPENEM
     Indication: LARYNGEAL CANCER
     Dosage: 1 G, 3X/DAY
     Route: 041
     Dates: start: 20181016, end: 20181024

REACTIONS (1)
  - Renal impairment [Recovering/Resolving]

NARRATIVE: CASE EVENT DATE: 20181024
